FAERS Safety Report 6920164-5 (Version None)
Quarter: 2010Q3

REPORT INFORMATION
  Report Type: 
  Country: None (occurrence: None)
  Receive Date: 20100809
  Receipt Date: 20100714
  Transmission Date: 20110219
  Serious: Yes (Congenital Anomaly)
  Sender: FDA-Public Use
  Company Number: 2010MB000036

PATIENT
  Sex: Female
  Weight: 3.7 kg

DRUGS (2)
  1. CEPHALEXIN [Suspect]
  2. DIPYRONE (METAMIZOLE SODIUM) [Suspect]

REACTIONS (2)
  - CLEFT LIP AND PALATE [None]
  - MATERNAL DRUGS AFFECTING FOETUS [None]
